FAERS Safety Report 9300465 (Version 1)
Quarter: 2013Q2

REPORT INFORMATION
  Report Type: Spontaneous
  Country: FI (occurrence: FI)
  Receive Date: 20130521
  Receipt Date: 20130521
  Transmission Date: 20140414
  Serious: Yes (Other)
  Sender: FDA-Public Use
  Company Number: FI-ASTELLAS-2013EU004381

PATIENT
  Age: 67 Year
  Sex: 0

DRUGS (1)
  1. VESICARE [Suspect]
     Dosage: UNK
     Route: 065

REACTIONS (1)
  - Brain stem infarction [Unknown]
